FAERS Safety Report 19062237 (Version 1)
Quarter: 2021Q1

REPORT INFORMATION
  Report Type: Report from Study
  Country: JP (occurrence: JP)
  Receive Date: 20210326
  Receipt Date: 20210326
  Transmission Date: 20210420
  Serious: Yes (Other)
  Sender: FDA-Public Use
  Company Number: JP-GILEAD-2021-0522793

PATIENT
  Age: 37 Year
  Sex: Male

DRUGS (10)
  1. DOXORUBICIN HYDROCHLORIDE. [Concomitant]
     Active Substance: DOXORUBICIN HYDROCHLORIDE
     Indication: LYMPHOMA
  2. CYCLOPHOSPHAMIDE. [Concomitant]
     Active Substance: CYCLOPHOSPHAMIDE
     Indication: LYMPHOMA
  3. RITUXIMAB. [Concomitant]
     Active Substance: RITUXIMAB
     Indication: LYMPHOMA
  4. EMTRICITABINE/TENOFOVIR ALAFENAMIDE [Suspect]
     Active Substance: EMTRICITABINE\TENOFOVIR
     Indication: HIV INFECTION
     Dosage: UNK
     Route: 065
  5. RALTEGRAVIR POTASSIUM [Concomitant]
     Active Substance: RALTEGRAVIR POTASSIUM
     Indication: HIV INFECTION
  6. ETOPOSIDE. [Concomitant]
     Active Substance: ETOPOSIDE
     Indication: LYMPHOMA
  7. ONCOVIN [Concomitant]
     Active Substance: VINCRISTINE SULFATE
     Indication: LYMPHOMA
  8. PREDNISOLONE. [Concomitant]
     Active Substance: PREDNISOLONE
     Indication: LYMPHOMA
  9. CYTARABINE. [Concomitant]
     Active Substance: CYTARABINE
     Indication: LYMPHOMA
  10. METHOTREXATE. [Concomitant]
     Active Substance: METHOTREXATE
     Indication: LYMPHOMA

REACTIONS (2)
  - Oesophageal candidiasis [Unknown]
  - Amoebic dysentery [Unknown]
